FAERS Safety Report 8968354 (Version 1)
Quarter: 2012Q4

REPORT INFORMATION
  Report Type: 
  Country: US (occurrence: US)
  Receive Date: 20121218
  Receipt Date: 20121218
  Transmission Date: 20130627
  Serious: No
  Sender: FDA-Public Use
  Company Number: US-BRISTOL-MYERS SQUIBB COMPANY-16756389

PATIENT
  Age: 81 Year
  Sex: Female
  Weight: 55.33 kg

DRUGS (1)
  1. ABILIFY TABS 2 MG [Suspect]
     Indication: ANXIETY
     Dosage: 1df=1/2 tablet
Started 1yr ago

REACTIONS (2)
  - Dyskinesia [Unknown]
  - Pain [Unknown]
